FAERS Safety Report 15477388 (Version 1)
Quarter: 2018Q4

REPORT INFORMATION
  Report Type: Spontaneous
  Country: US (occurrence: US)
  Receive Date: 20181009
  Receipt Date: 20181009
  Transmission Date: 20190205
  Serious: No
  Sender: FDA-Public Use
  Company Number: US-GLENMARK PHARMACEUTICALS-2018GMK036840

PATIENT

DRUGS (1)
  1. URSODIOL TABLETS USP, 500 MG [Suspect]
     Active Substance: URSODIOL
     Indication: BACTERIAL INFECTION
     Dosage: 500 MG, BID (AT MORNING AND NIGHT)
     Route: 065
     Dates: start: 201801

REACTIONS (2)
  - No adverse event [Unknown]
  - Product use in unapproved indication [Unknown]
